FAERS Safety Report 18892556 (Version 10)
Quarter: 2021Q2

REPORT INFORMATION
  Report Type: Report from Study
  Country: FI (occurrence: FI)
  Receive Date: 20210215
  Receipt Date: 20210521
  Transmission Date: 20210717
  Serious: Yes (Hospitalization)
  Sender: FDA-Public Use
  Company Number: FI-GLAXOSMITHKLINE-FI2021GSK035442

PATIENT
  Age: 75 Year
  Sex: Female
  Weight: 68.3 kg

DRUGS (29)
  1. PREDNISOLON [Concomitant]
     Active Substance: PREDNISOLONE
     Indication: INFECTION
     Dosage: 10 MG, QD
     Route: 048
     Dates: start: 20210125, end: 20210131
  2. PREDNISOLON [Concomitant]
     Active Substance: PREDNISOLONE
     Dosage: 40 MG, QD
     Route: 048
     Dates: start: 20210302, end: 20210305
  3. FUCIDIN [Concomitant]
     Active Substance: FUSIDATE SODIUM
     Indication: PARONYCHIA
     Dosage: UNK UNK, TID
     Route: 062
     Dates: start: 20210121, end: 20210204
  4. PANTOPRATSOLI [Concomitant]
     Indication: ANAEMIA
     Dosage: 40 MG, BID
     Route: 042
     Dates: start: 20210222, end: 20210227
  5. NIRAPARIB [Suspect]
     Active Substance: NIRAPARIB
     Indication: OVARIAN CANCER
     Dosage: UNK
     Dates: start: 20210113
  6. CARBOPLATIN. [Suspect]
     Active Substance: CARBOPLATIN
     Indication: OVARIAN CANCER
     Dosage: 5 AUC
     Route: 042
     Dates: start: 20200707, end: 20200707
  7. PACLITAXEL. [Suspect]
     Active Substance: PACLITAXEL
     Indication: OVARIAN CANCER
     Dosage: 305 MG
     Route: 042
     Dates: start: 20200707, end: 20200707
  8. DOCETAXEL. [Concomitant]
     Active Substance: DOCETAXEL
     Indication: OVARIAN CANCER
     Dosage: UNK
     Route: 042
  9. PREDNISOLON [Concomitant]
     Active Substance: PREDNISOLONE
     Dosage: 30 MG, QD
     Route: 048
     Dates: start: 20210306, end: 20210309
  10. SOMAC [Concomitant]
     Active Substance: PANTOPRAZOLE SODIUM
     Indication: PROPHYLAXIS
     Dosage: 40 MG, QD
     Route: 048
     Dates: start: 20210227
  11. PLACEBO [Suspect]
     Active Substance: UNSPECIFIED INGREDIENT
     Dosage: UNK
     Dates: end: 20201125
  12. PACLITAXEL. [Suspect]
     Active Substance: PACLITAXEL
     Dosage: 301 MG
     Route: 042
     Dates: start: 20201124, end: 20201124
  13. PREDNISOLON [Concomitant]
     Active Substance: PREDNISOLONE
     Indication: VASCULITIS
     Dosage: 20 MG, QD
     Route: 048
     Dates: start: 20210113, end: 20210124
  14. CORSODYL [Concomitant]
     Active Substance: CHLORHEXIDINE GLUCONATE
     Indication: STOMATITIS
     Dosage: (1% PART OF ORAL GEL), TID
     Route: 048
     Dates: start: 20210125
  15. NIRAPARIB [Suspect]
     Active Substance: NIRAPARIB
     Dosage: 200 MG, QD
     Dates: start: 20210209, end: 20210210
  16. PREDNISOLON [Concomitant]
     Active Substance: PREDNISOLONE
     Dosage: UNK
     Dates: end: 20210328
  17. KLEXANE [Concomitant]
     Active Substance: ENOXAPARIN
     Indication: PULMONARY EMBOLISM
     Dosage: 60 MG, BID
     Route: 058
     Dates: start: 20210119, end: 20210309
  18. PREDNISON [Concomitant]
     Active Substance: PREDNISONE
     Dosage: UNK
     Dates: end: 20210328
  19. PLACEBO [Suspect]
     Active Substance: UNSPECIFIED INGREDIENT
     Indication: OVARIAN CANCER
     Dosage: 500 MG
     Dates: start: 20200728, end: 20200728
  20. PREDNISOLON [Concomitant]
     Active Substance: PREDNISOLONE
     Dosage: UNK
     Route: 048
  21. PREDNISOLON [Concomitant]
     Active Substance: PREDNISOLONE
     Dosage: 60 MG, QD
     Route: 048
     Dates: start: 20210226, end: 20210301
  22. XYLOCAIN 2% [Concomitant]
     Indication: STOMATITIS
     Dosage: UNK, TID
     Route: 048
     Dates: start: 20210125
  23. ENOXAPARIN [Concomitant]
     Active Substance: ENOXAPARIN
     Indication: PULMONARY EMBOLISM
     Dosage: 60 MG, BID
  24. PLACEBO [Suspect]
     Active Substance: UNSPECIFIED INGREDIENT
     Dosage: 500 MG
     Dates: start: 20201124, end: 20201124
  25. CARBOPLATIN. [Suspect]
     Active Substance: CARBOPLATIN
     Dosage: 5 AUC
     Route: 042
     Dates: start: 20201124, end: 20201124
  26. BEVACIZUMAB. [Suspect]
     Active Substance: BEVACIZUMAB
     Indication: OVARIAN CANCER
     Dosage: UNK
     Route: 042
  27. CISPLATIN. [Concomitant]
     Active Substance: CISPLATIN
     Indication: OVARIAN CANCER
     Dosage: UNK
     Route: 042
  28. DAKTARIN 2% [Concomitant]
     Active Substance: MICONAZOLE NITRATE
     Indication: STOMATITIS
     Dosage: UNK UNK, TID (PART OF ORAL GEL)
     Route: 048
     Dates: start: 20210125
  29. ONDANSETRON STADA [Concomitant]
     Indication: PROPHYLAXIS
     Dosage: 4 MG, BID
     Route: 048
     Dates: start: 20210222, end: 20210309

REACTIONS (3)
  - Infection [Recovered/Resolved]
  - Retroperitoneal haematoma [Not Recovered/Not Resolved]
  - Pneumonitis [Recovered/Resolved]

NARRATIVE: CASE EVENT DATE: 20210201
